FAERS Safety Report 23842043 (Version 1)
Quarter: 2024Q2

REPORT INFORMATION
  Report Type: Spontaneous
  Country: US (occurrence: None)
  Receive Date: 20240509
  Receipt Date: 20240509
  Transmission Date: 20240716
  Serious: Yes (Hospitalization)
  Sender: FDA-Public Use
  Company Number: None

PATIENT
  Age: 60 Year
  Sex: Male

DRUGS (1)
  1. MORPHINE [Suspect]
     Active Substance: MORPHINE
     Dates: start: 20240411, end: 20240411

REACTIONS (3)
  - Overdose [None]
  - Acute respiratory failure [None]
  - Atrial fibrillation [None]

NARRATIVE: CASE EVENT DATE: 20240411
